FAERS Safety Report 9134956 (Version 1)
Quarter: 2013Q1

REPORT INFORMATION
  Report Type: Spontaneous
  Country: US (occurrence: None)
  Receive Date: 20130215
  Receipt Date: 20130215
  Transmission Date: 20140127
  Serious: Yes (Death)
  Sender: FDA-Public Use
  Company Number: SYM-2013-00265

PATIENT
  Age: 43 Year
  Sex: Female

DRUGS (6)
  1. VENLAFAXINE (VENLAFAXINE) (VENLAFAXINE) [Suspect]
     Indication: PRODUCT USED FOR UNKNOWN INDICATION
  2. METHAMPHETAMINE (METAMFETAMINE HYDROCHLORIDE) (METAMFETAMINE HYDROCHLORIDE) [Suspect]
     Indication: PRODUCT USED FOR UNKNOWN INDICATION
  3. FLUOXETINE (FLUOXETINE) (FLUOXETINE) [Suspect]
     Indication: PRODUCT USED FOR UNKNOWN INDICATION
  4. CITALOPRAM (CITALOPRAM) (CITALOPRAM) [Suspect]
     Indication: PRODUCT USED FOR UNKNOWN INDICATION
  5. DOXEPIN (DOXEPIN) (DOXEPIN) [Suspect]
     Indication: PRODUCT USED FOR UNKNOWN INDICATION
  6. MILNACIPRAN (MILNACIPRAN) (MILNACIPRAN) [Suspect]
     Indication: PRODUCT USED FOR UNKNOWN INDICATION

REACTIONS (2)
  - Poisoning [None]
  - Drug abuse [None]
